FAERS Safety Report 9643583 (Version 1)
Quarter: 2013Q4

REPORT INFORMATION
  Report Type: Spontaneous
  Country: US (occurrence: US)
  Receive Date: 20131024
  Receipt Date: 20131024
  Transmission Date: 20140711
  Serious: Yes (Hospitalization)
  Sender: FDA-Public Use
  Company Number: US-GLAXOSMITHKLINE-A1046488A

PATIENT
  Age: 27 Year
  Sex: Male

DRUGS (4)
  1. ADVAIR [Suspect]
     Indication: ASTHMA
  2. VENTOLIN [Suspect]
     Indication: ASTHMA
     Route: 055
  3. DILANTIN [Concomitant]
  4. SINGULAIR [Concomitant]

REACTIONS (3)
  - Limb injury [Unknown]
  - Amphetamines positive [Unknown]
  - Drug ineffective [Unknown]
